FAERS Safety Report 22359334 (Version 15)
Quarter: 2025Q1

REPORT INFORMATION
  Report Type: Report from Study
  Country: AU (occurrence: AU)
  Receive Date: 20230524
  Receipt Date: 20250327
  Transmission Date: 20250408
  Serious: Yes (Other)
  Sender: TAKEDA
  Company Number: AU-TAKEDA-2023TUS051169

PATIENT
  Age: 76 Year
  Sex: Female

DRUGS (26)
  1. VEDOLIZUMAB [Suspect]
     Active Substance: VEDOLIZUMAB
     Indication: Colitis ulcerative
  2. VEDOLIZUMAB [Suspect]
     Active Substance: VEDOLIZUMAB
     Dosage: 300 MILLIGRAM, Q4WEEKS
  3. VEDOLIZUMAB [Suspect]
     Active Substance: VEDOLIZUMAB
     Dosage: 300 MILLIGRAM, Q4WEEKS
  4. VEDOLIZUMAB [Suspect]
     Active Substance: VEDOLIZUMAB
     Dosage: 300 MILLIGRAM, Q4WEEKS
  5. VEDOLIZUMAB [Suspect]
     Active Substance: VEDOLIZUMAB
     Dosage: 300 MILLIGRAM, Q4WEEKS
  6. VEDOLIZUMAB [Suspect]
     Active Substance: VEDOLIZUMAB
     Dosage: 300 MILLIGRAM, Q4WEEKS
  7. VEDOLIZUMAB [Suspect]
     Active Substance: VEDOLIZUMAB
     Dosage: 300 MILLIGRAM, Q4WEEKS
  8. VEDOLIZUMAB [Suspect]
     Active Substance: VEDOLIZUMAB
     Dosage: 300 MILLIGRAM, Q4WEEKS
  9. VEDOLIZUMAB [Suspect]
     Active Substance: VEDOLIZUMAB
     Dosage: 300 MILLIGRAM, Q4WEEKS
  10. Salofalk [Concomitant]
     Dosage: 4 GRAM, QD
  11. Salofalk [Concomitant]
     Dosage: 1 GRAM, QD
  12. BUDESONIDE [Concomitant]
     Active Substance: BUDESONIDE
  13. Aroxin [Concomitant]
  14. EPILIM [Concomitant]
     Active Substance: VALPROATE SODIUM
  15. TWYNSTA [Concomitant]
     Active Substance: AMLODIPINE BESYLATE\TELMISARTAN
  16. ROSUVASTATIN CALCIUM [Concomitant]
     Active Substance: ROSUVASTATIN CALCIUM
  17. Salpraz [Concomitant]
  18. Amlo [Concomitant]
  19. CALTRATE [Concomitant]
     Active Substance: CALCIUM CARBONATE
  20. MAGNESIUM [Concomitant]
     Active Substance: MAGNESIUM
  21. Ostelin [Concomitant]
  22. EUTROXSIG [Concomitant]
     Active Substance: LEVOTHYROXINE SODIUM
  23. SYMBICORT [Concomitant]
     Active Substance: BUDESONIDE\FORMOTEROL FUMARATE DIHYDRATE
  24. VENTOLIN [Concomitant]
     Active Substance: ALBUTEROL SULFATE
  25. SPIRIVA [Concomitant]
     Active Substance: TIOTROPIUM BROMIDE MONOHYDRATE
  26. Osteomol [Concomitant]

REACTIONS (14)
  - Colitis ulcerative [Unknown]
  - Foreign body in throat [Unknown]
  - Joint swelling [Not Recovered/Not Resolved]
  - Dehydration [Recovered/Resolved]
  - Inappropriate schedule of product administration [Recovered/Resolved]
  - Stress [Recovered/Resolved]
  - Therapeutic reaction time decreased [Not Recovered/Not Resolved]
  - Poor venous access [Not Recovered/Not Resolved]
  - Vascular access complication [Not Recovered/Not Resolved]
  - Oxygen saturation decreased [Recovered/Resolved]
  - Anxiety [Unknown]
  - Weight increased [Not Recovered/Not Resolved]
  - Family stress [Unknown]
  - Hypertension [Not Recovered/Not Resolved]

NARRATIVE: CASE EVENT DATE: 20230625
